FAERS Safety Report 8585891-5 (Version None)
Quarter: 2012Q3

REPORT INFORMATION
  Report Type: 
  Country: None (occurrence: None)
  Receive Date: 20120802
  Receipt Date: 20120802
  Transmission Date: 20120928
  Serious: Yes (Other)
  Sender: FDA-Public Use
  Company Number: None

PATIENT
  Age: 35 Year
  Sex: Male
  Weight: 117.9352 kg

DRUGS (1)
  1. SUBOXONE [Suspect]

REACTIONS (15)
  - MOOD SWINGS [None]
  - AGGRESSION [None]
  - DECREASED INTEREST [None]
  - CONSTIPATION [None]
  - APATHY [None]
  - FEELING OF DESPAIR [None]
  - CHEST PAIN [None]
  - LOSS OF EMPLOYMENT [None]
  - SOMNOLENCE [None]
  - ACTIVITIES OF DAILY LIVING IMPAIRED [None]
  - HYPERHIDROSIS [None]
  - SUICIDAL IDEATION [None]
  - MUSCULOSKELETAL STIFFNESS [None]
  - DEPRESSION [None]
  - MUSCULOSKELETAL PAIN [None]
